FAERS Safety Report 15714516 (Version 2)
Quarter: 2018Q4

REPORT INFORMATION
  Report Type: Spontaneous
  Country: GB (occurrence: GB)
  Receive Date: 20181212
  Receipt Date: 20181214
  Transmission Date: 20190205
  Serious: Yes (Hospitalization)
  Sender: FDA-Public Use
  Company Number: GB-PFIZER INC-2964847

PATIENT
  Age: 68 Year
  Sex: Female
  Weight: 71.95 kg

DRUGS (8)
  1. CREON [Concomitant]
     Active Substance: PANCRELIPASE AMYLASE\PANCRELIPASE LIPASE\PANCRELIPASE PROTEASE
     Indication: PANCREATIC FAILURE
     Dosage: UNK, THRICE DAILY
     Route: 048
  2. CALCIUM [Concomitant]
     Active Substance: CALCIUM
     Indication: PROPHYLAXIS
     Dosage: UNK, ONCE DAILY
     Route: 048
  3. ABRAXANE [Suspect]
     Active Substance: PACLITAXEL
     Indication: ADENOCARCINOMA PANCREAS
     Dosage: 225 MG, CYCLIC (3 DAYS EVERY 28)
     Route: 041
     Dates: end: 20150513
  4. OMEPRAZOLE. [Concomitant]
     Active Substance: OMEPRAZOLE
     Indication: GASTRITIS PROPHYLAXIS
     Dosage: UNK, ONCE DAILY
     Route: 048
  5. DEXAMETHASONE. [Concomitant]
     Active Substance: DEXAMETHASONE
     Indication: ANTIEMETIC SUPPORTIVE CARE
     Dosage: UNK, ONCE DAILY
     Route: 065
  6. THYROXINE [Concomitant]
     Active Substance: LEVOTHYROXINE
     Indication: HYPOTHYROIDISM
     Dosage: UNK, ONCE DAILY
     Route: 048
  7. GEMCITABINE HYDROCHLORIDE. [Suspect]
     Active Substance: GEMCITABINE HYDROCHLORIDE
     Indication: ADENOCARCINOMA PANCREAS
     Dosage: UNK
     Dates: start: 20150501, end: 20150513
  8. DOMPERIDONE [Concomitant]
     Active Substance: DOMPERIDONE
     Indication: ANTIEMETIC SUPPORTIVE CARE
     Dosage: UNK, THRICE DAILY
     Route: 065

REACTIONS (2)
  - Febrile neutropenia [Recovered/Resolved]
  - Respiratory symptom [Unknown]

NARRATIVE: CASE EVENT DATE: 20150518
